FAERS Safety Report 20067928 (Version 1)
Quarter: 2021Q4

REPORT INFORMATION
  Report Type: Spontaneous
  Country: US (occurrence: None)
  Receive Date: 20211112
  Receipt Date: 20211112
  Transmission Date: 20220303
  Serious: No
  Sender: FDA-Public Use
  Company Number: None

PATIENT
  Age: 67 Year
  Sex: Female
  Weight: 99.79 kg

DRUGS (2)
  1. STELARA [Suspect]
     Active Substance: USTEKINUMAB
     Indication: Psoriatic arthropathy
     Dosage: INJECT 90MG SUBCUTANEOUSLY ON DAY 0, DAY 28 THEN EVERY 12 WEEKS   AS DIRECTED?
     Route: 058
     Dates: start: 201512
  2. STELARA [Suspect]
     Active Substance: USTEKINUMAB
     Indication: Psoriasis

REACTIONS (3)
  - Urinary tract infection [None]
  - Lower limb fracture [None]
  - Therapy interrupted [None]
